FAERS Safety Report 16839428 (Version 1)
Quarter: 2019Q4

REPORT INFORMATION
  Report Type: Spontaneous
  Country: US (occurrence: US)
  Receive Date: 20190918
  Receipt Date: 20190918
  Transmission Date: 20200122
  Serious: No
  Sender: FDA-Public Use
  Company Number: None

PATIENT
  Age: 1 Month

DRUGS (2)
  1. TALTZ [Suspect]
     Active Substance: IXEKIZUMAB
     Indication: PALMOPLANTAR PUSTULOSIS
     Route: 058
     Dates: start: 19711006
  2. TALTZ [Suspect]
     Active Substance: IXEKIZUMAB
     Indication: PALMOPLANTAR KERATODERMA
     Route: 058
     Dates: start: 19711006

REACTIONS (2)
  - Product dose omission [None]
  - Device malfunction [None]

NARRATIVE: CASE EVENT DATE: 20190904
